FAERS Safety Report 21683542 (Version 1)
Quarter: 2022Q4

REPORT INFORMATION
  Report Type: Spontaneous
  Country: US (occurrence: None)
  Receive Date: 20221202
  Receipt Date: 20221202
  Transmission Date: 20230112
  Serious: Yes (Hospitalization, Disabling)
  Sender: FDA-Public Use
  Company Number: None

PATIENT
  Age: 61 Year
  Sex: Female

DRUGS (2)
  1. FORTEO [Suspect]
     Active Substance: TERIPARATIDE
     Indication: Osteoporosis
     Dosage: FREQUENCY : DAILY;?
     Route: 058
     Dates: start: 20220920, end: 20221114
  2. CALCIUM [Suspect]
     Active Substance: CALCIUM
     Indication: Osteoporosis
     Dates: end: 20221114

REACTIONS (2)
  - Hypercalcaemia [None]
  - Illness [None]

NARRATIVE: CASE EVENT DATE: 20221114
